FAERS Safety Report 11848063 (Version 2)
Quarter: 2016Q1

REPORT INFORMATION
  Report Type: Report from Study
  Country: NL (occurrence: NL)
  Receive Date: 20151217
  Receipt Date: 20160113
  Transmission Date: 20160526
  Serious: Yes (Death)
  Sender: FDA-Public Use
  Company Number: NL-ABBVIE-15P-114-1520123-00

PATIENT
  Age: 65 Year
  Sex: Male

DRUGS (1)
  1. DUODOPA [Suspect]
     Active Substance: CARBIDOPA\LEVODOPA
     Indication: PARKINSON^S DISEASE
     Dosage: 20/5MG/ML, CONTINUOUS MD 4.5, CD: 4.0
     Route: 050
     Dates: start: 20130208, end: 20151212

REACTIONS (4)
  - Blood pressure fluctuation [Unknown]
  - On and off phenomenon [Unknown]
  - Cardiac arrest [Fatal]
  - Dyskinesia [Unknown]

NARRATIVE: CASE EVENT DATE: 20151212
